FAERS Safety Report 5586050-0 (Version None)
Quarter: 2007Q4

REPORT INFORMATION
  Report Type: 
  Country: None (occurrence: None)
  Receive Date: 20071205
  Receipt Date: 20070430
  Transmission Date: 20080405
  Serious: Yes (Hospitalization, Other)
  Sender: FDA-Public Use
  Company Number: HQWYE917801MAY07

PATIENT
  Age: 84 Year
  Sex: Female
  Weight: 56.75 kg

DRUGS (4)
  1. EFFEXOR XR [Suspect]
     Indication: DEPRESSION
     Dosage: 37.5 (FREQUENCY UNSPECIFIED), ORAL
     Route: 048
     Dates: start: 20070412, end: 20070419
  2. ALTACE [Concomitant]
  3. ALBUTEROL [Concomitant]
  4. ATROVENT [Concomitant]

REACTIONS (1)
  - HYPONATRAEMIA [None]
